FAERS Safety Report 6148622-4 (Version None)
Quarter: 2009Q2

REPORT INFORMATION
  Report Type: 
  Country: None (occurrence: None)
  Receive Date: 20090408
  Receipt Date: 20090327
  Transmission Date: 20091009
  Serious: Yes (Other)
  Sender: FDA-Public Use
  Company Number: HU-WATSON-2009-02098

PATIENT
  Sex: Male

DRUGS (6)
  1. TRELSTAR DEPOT [Suspect]
     Indication: PROSTATE CANCER
     Dosage: 3.75 MG, SINGLE
     Route: 030
     Dates: start: 20090316, end: 20090316
  2. ZOLADEX [Concomitant]
     Indication: PROSTATE CANCER
     Dosage: 3.6 MG, UNKNOWN
     Route: 065
     Dates: start: 20081201
  3. TRITACE [Concomitant]
     Indication: DRUG USE FOR UNKNOWN INDICATION
     Dosage: 10 MG, UNKNOWN
     Route: 065
     Dates: start: 19990101
  4. SYNCUMAR [Concomitant]
     Indication: DRUG USE FOR UNKNOWN INDICATION
     Dosage: UNK
     Route: 065
     Dates: start: 19990101
  5. PRETANIX [Concomitant]
     Indication: DRUG USE FOR UNKNOWN INDICATION
     Dosage: UNK
     Route: 065
     Dates: start: 20030101
  6. TALLITON [Concomitant]
     Indication: DRUG USE FOR UNKNOWN INDICATION
     Dosage: UNK
     Route: 065
     Dates: start: 20030101

REACTIONS (1)
  - RETINAL ARTERY OCCLUSION [None]
